FAERS Safety Report 18669615 (Version 2)
Quarter: 2025Q4

REPORT INFORMATION
  Report Type: Spontaneous
  Country: TH (occurrence: TH)
  Receive Date: 20201228
  Receipt Date: 20251204
  Transmission Date: 20260118
  Serious: Yes (Hospitalization, Other)
  Sender: ALKEM
  Company Number: None

PATIENT
  Age: 63 Year
  Sex: Male

DRUGS (3)
  1. MYCOPHENOLATE MOFETIL [Suspect]
     Active Substance: MYCOPHENOLATE MOFETIL
     Indication: Immunosuppressant drug therapy
     Dosage: UNK
     Route: 065
  2. CYCLOSPORINE [Suspect]
     Active Substance: CYCLOSPORINE
     Indication: Immunosuppressant drug therapy
     Dosage: UNK
     Route: 065
  3. ACYCLOVIR [Concomitant]
     Active Substance: ACYCLOVIR
     Indication: Antiviral prophylaxis
     Dosage: UNK
     Route: 065

REACTIONS (2)
  - Burkholderia pseudomallei infection [Recovering/Resolving]
  - Pneumonia [Recovering/Resolving]
